FAERS Safety Report 4380050-4 (Version None)
Quarter: 2004Q2

REPORT INFORMATION
  Report Type: 
  Country: None (occurrence: None)
  Receive Date: 20040614
  Receipt Date: 20040528
  Transmission Date: 20050107
  Serious: Yes (Life-Threatening, Other)
  Sender: FDA-Public Use
  Company Number: 200404333

PATIENT
  Age: 54 Year
  Sex: Female

DRUGS (2)
  1. BOTOX [Suspect]
     Indication: FACIAL PALSY
  2. BOTOX [Suspect]
     Indication: MUSCLE SPASMS

REACTIONS (1)
  - LARYNGOSPASM [None]
